FAERS Safety Report 11005690 (Version 1)
Quarter: 2015Q2

REPORT INFORMATION
  Report Type: Report from Study
  Country: CA (occurrence: CA)
  Receive Date: 20150409
  Receipt Date: 20150409
  Transmission Date: 20150821
  Serious: Yes (Other)
  Sender: FDA-Public Use
  Company Number: CA-JNJFOC-20150403517

PATIENT
  Sex: Male
  Weight: 68 kg

DRUGS (7)
  1. IMURAN [Concomitant]
     Active Substance: AZATHIOPRINE
     Route: 065
  2. REMICADE [Suspect]
     Active Substance: INFLIXIMAB
     Indication: CROHN^S DISEASE
     Route: 042
     Dates: start: 20140613
  3. ATORVASTATIN [Concomitant]
     Active Substance: ATORVASTATIN
     Route: 065
  4. PROFERRIN [Concomitant]
     Route: 065
  5. NITROGLYCERIN SPRAY [Concomitant]
     Active Substance: NITROGLYCERIN
     Route: 065
  6. BISOPROLOL [Concomitant]
     Active Substance: BISOPROLOL
     Route: 065
  7. ASA [Concomitant]
     Active Substance: ASPIRIN
     Route: 065

REACTIONS (2)
  - Carpal tunnel syndrome [Recovering/Resolving]
  - Squamous cell carcinoma [Recovering/Resolving]
